FAERS Safety Report 9485059 (Version 1)
Quarter: 2013Q3

REPORT INFORMATION
  Report Type: Spontaneous
  Country: US (occurrence: US)
  Receive Date: 20130828
  Receipt Date: 20130828
  Transmission Date: 20140515
  Serious: No
  Sender: FDA-Public Use
  Company Number: US-ABBOTT-13P-163-1133222-00

PATIENT
  Age: 78 Year
  Sex: Male
  Weight: 88.53 kg

DRUGS (11)
  1. ANDROGEL [Suspect]
     Indication: BLOOD TESTOSTERONE DECREASED
     Dosage: 4 PUMPS DAILY
     Route: 061
     Dates: start: 201303
  2. ANDROGEL [Suspect]
     Indication: BLOOD TESTOSTERONE DECREASED
     Dosage: SWITCHED TO 1.62%
     Dates: end: 201303
  3. ZOCOR [Concomitant]
     Indication: BLOOD CHOLESTEROL INCREASED
  4. ALTACE [Concomitant]
     Indication: PRODUCT USED FOR UNKNOWN INDICATION
  5. RAMIPRIL [Concomitant]
     Indication: HYPERTENSION
  6. FLOMAX [Concomitant]
     Indication: PROSTATIC DISORDER
  7. LEVOXYL [Concomitant]
     Indication: HYPOTHYROIDISM
  8. ALLOPURINOL [Concomitant]
     Indication: NEPHROLITHIASIS
  9. VITAMIN B6 [Concomitant]
     Indication: PRODUCT USED FOR UNKNOWN INDICATION
  10. VITAMIN B12 [Concomitant]
     Indication: PRODUCT USED FOR UNKNOWN INDICATION
  11. METAMUCIL [Concomitant]
     Indication: PRODUCT USED FOR UNKNOWN INDICATION

REACTIONS (3)
  - Skin burning sensation [Recovered/Resolved]
  - Pain [Recovered/Resolved]
  - Laceration [Not Recovered/Not Resolved]
